FAERS Safety Report 21515880 (Version 1)
Quarter: 2022Q4

REPORT INFORMATION
  Report Type: Spontaneous
  Country: ES (occurrence: ES)
  Receive Date: 20221027
  Receipt Date: 20221027
  Transmission Date: 20230113
  Serious: Yes (Other)
  Sender: FDA-Public Use
  Company Number: ES-FreseniusKabi-FK202214530

PATIENT
  Age: 42 Year
  Sex: Male

DRUGS (4)
  1. PROPOFOL [Suspect]
     Active Substance: PROPOFOL
     Indication: Sleep endoscopy
     Dosage: (LOADING DOSE OF 1-1.5MG AND MAINTENANCE DOSE OF 20 MG EVERY 3 TO 5 MINUTES)
  2. PROPOFOL [Suspect]
     Active Substance: PROPOFOL
     Indication: Sedation
  3. MIDAZOLAM [Concomitant]
     Active Substance: MIDAZOLAM
     Indication: Sleep endoscopy
  4. MIDAZOLAM [Concomitant]
     Active Substance: MIDAZOLAM
     Indication: Sedation

REACTIONS (1)
  - Seizure [Recovered/Resolved]
